FAERS Safety Report 8296101-0 (Version None)
Quarter: 2012Q2

REPORT INFORMATION
  Report Type: 
  Country: None (occurrence: None)
  Receive Date: 20120418
  Receipt Date: 20120411
  Transmission Date: 20120825
  Serious: Yes (Hospitalization)
  Sender: FDA-Public Use
  Company Number: US-GLAXOSMITHKLINE-A0973229A

PATIENT
  Age: 65 Year
  Sex: Female

DRUGS (5)
  1. ACID REFLUX MED. [Concomitant]
  2. XANAX [Concomitant]
  3. ZOLOFT [Concomitant]
  4. TYKERB [Suspect]
     Indication: BREAST CANCER
     Dosage: 6TAB PER DAY
     Route: 048
     Dates: start: 20120402, end: 20120404
  5. LOPRESSOR [Concomitant]

REACTIONS (3)
  - DECREASED APPETITE [None]
  - ABDOMINAL PAIN UPPER [None]
  - NAUSEA [None]
